FAERS Safety Report 23053502 (Version 2)
Quarter: 2024Q1

REPORT INFORMATION
  Report Type: Spontaneous
  Country: PL (occurrence: PL)
  Receive Date: 20231011
  Receipt Date: 20240219
  Transmission Date: 20240409
  Serious: Yes (Death, Life-Threatening, Other)
  Sender: FDA-Public Use
  Company Number: PL-CELLTRION INC.-2023PL019180

PATIENT

DRUGS (64)
  1. RITUXIMAB [Suspect]
     Active Substance: RITUXIMAB
     Indication: Diffuse large B-cell lymphoma
     Dosage: 1ST CYCLE
     Route: 065
     Dates: start: 20201215, end: 20201218
  2. RITUXIMAB [Suspect]
     Active Substance: RITUXIMAB
     Dosage: 2ND CYCLE
     Route: 065
     Dates: start: 20210105, end: 20210106
  3. RITUXIMAB [Suspect]
     Active Substance: RITUXIMAB
     Dosage: 3RD CYCLE
     Route: 065
     Dates: start: 20210129, end: 20210130
  4. RITUXIMAB [Suspect]
     Active Substance: RITUXIMAB
     Dosage: 4TH CYCLE
     Route: 065
     Dates: start: 20210219, end: 20210220
  5. RITUXIMAB [Suspect]
     Active Substance: RITUXIMAB
     Dosage: 5TH CYCLE
     Route: 065
     Dates: start: 20210315, end: 20210316
  6. RITUXIMAB [Suspect]
     Active Substance: RITUXIMAB
     Dosage: 6TH CYCLE
     Route: 065
     Dates: start: 20210406, end: 20210407
  7. RITUXIMAB [Suspect]
     Active Substance: RITUXIMAB
     Dosage: 7TH CYCLE
     Route: 065
     Dates: start: 20210429
  8. RITUXIMAB [Suspect]
     Active Substance: RITUXIMAB
     Dosage: 8TH CYCLE
     Route: 065
     Dates: start: 20210520, end: 20210521
  9. RITUXIMAB [Suspect]
     Active Substance: RITUXIMAB
     Dosage: UNK
     Route: 065
     Dates: start: 20220607, end: 20220609
  10. RITUXIMAB [Suspect]
     Active Substance: RITUXIMAB
     Dosage: UNK
     Route: 065
     Dates: start: 20220702, end: 20220704
  11. RITUXIMAB [Suspect]
     Active Substance: RITUXIMAB
     Dosage: UNK
     Route: 065
     Dates: start: 20220916, end: 20220918
  12. RITUXIMAB [Suspect]
     Active Substance: RITUXIMAB
     Dosage: UNK
     Route: 065
     Dates: start: 20221007, end: 20221008
  13. RITUXIMAB [Suspect]
     Active Substance: RITUXIMAB
     Dosage: UNK
     Route: 065
     Dates: start: 20221127, end: 20221129
  14. DOXORUBICIN [Suspect]
     Active Substance: DOXORUBICIN
     Indication: Diffuse large B-cell lymphoma
     Dosage: 1ST CYCLE
     Route: 065
     Dates: start: 20201215, end: 20201218
  15. DOXORUBICIN [Suspect]
     Active Substance: DOXORUBICIN
     Dosage: 2ND CYCLE
     Route: 065
     Dates: start: 20210105, end: 20210106
  16. DOXORUBICIN [Suspect]
     Active Substance: DOXORUBICIN
     Dosage: 3RD CYCLE
     Route: 065
     Dates: start: 20210129, end: 20210130
  17. DOXORUBICIN [Suspect]
     Active Substance: DOXORUBICIN
     Dosage: 4TH CYCLE
     Route: 065
     Dates: start: 20210219, end: 20210220
  18. DOXORUBICIN [Suspect]
     Active Substance: DOXORUBICIN
     Dosage: 5TH CYCLE
     Route: 065
     Dates: start: 20210315, end: 20210316
  19. DOXORUBICIN [Suspect]
     Active Substance: DOXORUBICIN
     Dosage: 6TH CYCLE
     Route: 065
     Dates: start: 20210406, end: 20210407
  20. DOXORUBICIN [Suspect]
     Active Substance: DOXORUBICIN
     Dosage: 7TH CYCLE
     Route: 065
     Dates: start: 20210429
  21. DOXORUBICIN [Suspect]
     Active Substance: DOXORUBICIN
     Dosage: 8TH CYCLE
     Route: 065
     Dates: start: 20210520, end: 20210521
  22. BENDAMUSTINE [Suspect]
     Active Substance: BENDAMUSTINE
     Indication: Diffuse large B-cell lymphoma
     Dosage: UNK
     Route: 065
     Dates: start: 20220916, end: 20220918
  23. BENDAMUSTINE [Suspect]
     Active Substance: BENDAMUSTINE
     Dosage: UNK
     Route: 065
     Dates: start: 20221007, end: 20221008
  24. BENDAMUSTINE [Suspect]
     Active Substance: BENDAMUSTINE
     Dosage: UNK
     Route: 065
     Dates: start: 20221127, end: 20221128
  25. CYTARABINE [Suspect]
     Active Substance: CYTARABINE
     Indication: Diffuse large B-cell lymphoma
     Dosage: UNK
     Route: 065
     Dates: start: 20220607, end: 20220609
  26. CYTARABINE [Suspect]
     Active Substance: CYTARABINE
     Dosage: UNK
     Route: 065
     Dates: start: 20220702, end: 20220704
  27. DEXAMETHASONE [Suspect]
     Active Substance: DEXAMETHASONE
     Indication: Diffuse large B-cell lymphoma
     Dosage: UNK
     Route: 065
     Dates: start: 20220607, end: 20220609
  28. DEXAMETHASONE [Suspect]
     Active Substance: DEXAMETHASONE
     Dosage: UNK
     Route: 065
     Dates: start: 20220702, end: 20220704
  29. POLATUZUMAB VEDOTIN [Suspect]
     Active Substance: POLATUZUMAB VEDOTIN
     Indication: Diffuse large B-cell lymphoma
     Dosage: UNK
     Route: 065
  30. CISPLATIN [Suspect]
     Active Substance: CISPLATIN
     Indication: Diffuse large B-cell lymphoma
     Dosage: UNK
     Route: 065
     Dates: start: 20220607, end: 20220609
  31. CISPLATIN [Suspect]
     Active Substance: CISPLATIN
     Dosage: UNK
     Route: 065
     Dates: start: 20220702, end: 20220704
  32. KYMRIAH [Suspect]
     Active Substance: TISAGENLECLEUCEL
     Indication: Diffuse large B-cell lymphoma
     Dosage: UNK
     Route: 065
     Dates: start: 20221207
  33. VINCRISTINE [Suspect]
     Active Substance: VINCRISTINE
     Indication: Diffuse large B-cell lymphoma
     Dosage: 1ST CYCLE
     Route: 065
     Dates: start: 20201215, end: 20201218
  34. VINCRISTINE [Suspect]
     Active Substance: VINCRISTINE
     Dosage: 2ND CYCLE
     Route: 065
     Dates: start: 20210105, end: 20210106
  35. VINCRISTINE [Suspect]
     Active Substance: VINCRISTINE
     Dosage: 3RD CYCLE
     Route: 065
     Dates: start: 20210129, end: 20210130
  36. VINCRISTINE [Suspect]
     Active Substance: VINCRISTINE
     Dosage: 4THC CYCLE
     Route: 065
     Dates: start: 20210219, end: 20210220
  37. VINCRISTINE [Suspect]
     Active Substance: VINCRISTINE
     Dosage: 5TH CYCLE
     Route: 065
     Dates: start: 20210315, end: 20210316
  38. VINCRISTINE [Suspect]
     Active Substance: VINCRISTINE
     Dosage: 6TH CYCLE
     Route: 065
     Dates: start: 20210406, end: 20210407
  39. VINCRISTINE [Suspect]
     Active Substance: VINCRISTINE
     Dosage: 7TH CYCLE
     Route: 065
     Dates: start: 20210429
  40. VINCRISTINE [Suspect]
     Active Substance: VINCRISTINE
     Dosage: 8TH CYCLE
     Route: 065
     Dates: start: 20210520, end: 20210521
  41. METHOTREXATE [Suspect]
     Active Substance: METHOTREXATE
     Indication: Diffuse large B-cell lymphoma
     Dosage: 1ST CYCLE
     Route: 065
     Dates: start: 20201215, end: 20201218
  42. METHOTREXATE [Suspect]
     Active Substance: METHOTREXATE
     Dosage: 2ND CYCLE
     Route: 065
     Dates: start: 20210105, end: 20210106
  43. METHOTREXATE [Suspect]
     Active Substance: METHOTREXATE
     Dosage: 3RD CYCLE
     Route: 065
     Dates: start: 20210129, end: 20210130
  44. METHOTREXATE [Suspect]
     Active Substance: METHOTREXATE
     Dosage: 4TH CYCLE
     Route: 065
     Dates: start: 20210219, end: 20210220
  45. METHOTREXATE [Suspect]
     Active Substance: METHOTREXATE
     Dosage: 5TH CYCLE
     Route: 065
     Dates: start: 20210315, end: 20210316
  46. METHOTREXATE [Suspect]
     Active Substance: METHOTREXATE
     Dosage: 6TH CYCLE
     Route: 065
     Dates: start: 20210406, end: 20210407
  47. METHOTREXATE [Suspect]
     Active Substance: METHOTREXATE
     Dosage: 7TH CYCLE
     Route: 065
     Dates: start: 20210429
  48. METHOTREXATE [Suspect]
     Active Substance: METHOTREXATE
     Dosage: 8TH CYCLE
     Route: 065
     Dates: start: 20210520, end: 20210521
  49. CYCLOPHOSPHAMIDE [Suspect]
     Active Substance: CYCLOPHOSPHAMIDE
     Indication: Diffuse large B-cell lymphoma
     Dosage: 1ST CYCLE
     Route: 065
     Dates: start: 20201215, end: 20201218
  50. CYCLOPHOSPHAMIDE [Suspect]
     Active Substance: CYCLOPHOSPHAMIDE
     Dosage: 2ND CYCLE
     Route: 065
     Dates: start: 20210105, end: 20210106
  51. CYCLOPHOSPHAMIDE [Suspect]
     Active Substance: CYCLOPHOSPHAMIDE
     Dosage: 3RD CYCLE
     Route: 065
     Dates: start: 20210129, end: 20210130
  52. CYCLOPHOSPHAMIDE [Suspect]
     Active Substance: CYCLOPHOSPHAMIDE
     Dosage: 4TH CYCLE
     Route: 065
     Dates: start: 20210219, end: 20210220
  53. CYCLOPHOSPHAMIDE [Suspect]
     Active Substance: CYCLOPHOSPHAMIDE
     Dosage: 5TH CYCLE
     Route: 065
     Dates: start: 20210315, end: 20210316
  54. CYCLOPHOSPHAMIDE [Suspect]
     Active Substance: CYCLOPHOSPHAMIDE
     Dosage: 6TH CYCLE
     Route: 065
     Dates: start: 20210406, end: 20210407
  55. CYCLOPHOSPHAMIDE [Suspect]
     Active Substance: CYCLOPHOSPHAMIDE
     Dosage: 7TH CYCLE
     Route: 065
     Dates: start: 20210429
  56. CYCLOPHOSPHAMIDE [Suspect]
     Active Substance: CYCLOPHOSPHAMIDE
     Dosage: 8TH CYCLE
     Route: 065
     Dates: start: 20210520, end: 20210521
  57. PREDNISONE [Suspect]
     Active Substance: PREDNISONE
     Indication: Diffuse large B-cell lymphoma
     Dosage: 1ST CYCLE
     Route: 065
     Dates: start: 20201215, end: 20201218
  58. PREDNISONE [Suspect]
     Active Substance: PREDNISONE
     Dosage: 2ND CYCLE
     Route: 065
     Dates: start: 20210105, end: 20210106
  59. PREDNISONE [Suspect]
     Active Substance: PREDNISONE
     Dosage: 3RD CYCLE
     Route: 065
     Dates: start: 20210129, end: 20210130
  60. PREDNISONE [Suspect]
     Active Substance: PREDNISONE
     Dosage: 4TH CYCLE
     Route: 065
     Dates: start: 20210219, end: 20210220
  61. PREDNISONE [Suspect]
     Active Substance: PREDNISONE
     Dosage: 5TH CYCLE
     Route: 065
     Dates: start: 20210315, end: 20210316
  62. PREDNISONE [Suspect]
     Active Substance: PREDNISONE
     Dosage: 6TH CYCLE
     Route: 065
     Dates: start: 20210406, end: 20210407
  63. PREDNISONE [Suspect]
     Active Substance: PREDNISONE
     Dosage: 7TH CYCLE
     Route: 065
     Dates: start: 20210429
  64. PREDNISONE [Suspect]
     Active Substance: PREDNISONE
     Dosage: 8TH CYCLE
     Route: 065
     Dates: start: 20210520, end: 20210521

REACTIONS (4)
  - Death [Fatal]
  - Thrombocytopenia [Unknown]
  - Diffuse large B-cell lymphoma recurrent [Unknown]
  - Immune effector cell-associated neurotoxicity syndrome [Recovered/Resolved]

NARRATIVE: CASE EVENT DATE: 20230408
